FAERS Safety Report 4301813-7 (Version None)
Quarter: 2004Q1

REPORT INFORMATION
  Report Type: 
  Country: None (occurrence: None)
  Receive Date: 20040218
  Receipt Date: 20030418
  Transmission Date: 20041129
  Serious: Yes (Hospitalization)
  Sender: FDA-Public Use
  Company Number: 2003156635US

PATIENT
  Age: 55 Year
  Sex: Male

DRUGS (3)
  1. DELTASONE [Suspect]
     Dosage: ORAL
     Route: 048
  2. VIOXX [Concomitant]
  3. OXYCONTIN [Concomitant]

REACTIONS (2)
  - DYSPNOEA [None]
  - FLUID RETENTION [None]
